FAERS Safety Report 6184812-2 (Version None)
Quarter: 2009Q2

REPORT INFORMATION
  Report Type: 
  Country: None (occurrence: None)
  Receive Date: 20090508
  Receipt Date: 20090430
  Transmission Date: 20091009
  Serious: Yes (Death, Other)
  Sender: FDA-Public Use
  Company Number: FR-ELI_LILLY_AND_COMPANY-FR200905000256

PATIENT
  Age: 28 Year

DRUGS (4)
  1. ZYPREXA [Suspect]
     Indication: SCHIZOPHRENIA
     Dosage: 30 MG, DAILY (1/D)
     Route: 048
     Dates: start: 20080801
  2. LOXAPAC [Concomitant]
     Indication: SCHIZOPHRENIA
     Dosage: 75 MG, DAILY (1/D)
     Route: 048
  3. SEROPLEX [Concomitant]
     Indication: SCHIZOPHRENIA
     Dosage: UNK, UNK
     Route: 048
  4. HYPNOTICS AND SEDATIVES [Concomitant]
     Indication: SCHIZOPHRENIA
     Route: 048

REACTIONS (4)
  - COMPLETED SUICIDE [None]
  - DEPRESSION [None]
  - MULTIPLE DRUG OVERDOSE INTENTIONAL [None]
  - OVERDOSE [None]
